FAERS Safety Report 14289829 (Version 1)
Quarter: 2017Q4

REPORT INFORMATION
  Report Type: Report from Study
  Country: US (occurrence: US)
  Receive Date: 20171215
  Receipt Date: 20171215
  Transmission Date: 20180321
  Serious: Yes (Hospitalization, Other)
  Sender: FDA-Public Use
  Company Number: US-BAYER-2017-053275

PATIENT
  Age: 16 Year
  Sex: Male

DRUGS (5)
  1. NEXAVAR [Suspect]
     Active Substance: SORAFENIB
     Indication: SOFT TISSUE NEOPLASM
     Dosage: 200 MG, BID
     Route: 048
  2. NEXAVAR [Suspect]
     Active Substance: SORAFENIB
     Indication: SOFT TISSUE NEOPLASM
     Dosage: 400 MG, BID
     Route: 048
     Dates: start: 20140923
  3. NEXAVAR [Suspect]
     Active Substance: SORAFENIB
     Indication: OSTEOMYELITIS
     Dosage: 200 MG, BID
     Route: 048
  4. NEXAVAR [Suspect]
     Active Substance: SORAFENIB
     Indication: SOFT TISSUE NEOPLASM
     Dosage: 200 MG, BID
     Route: 048
  5. NEXAVAR [Suspect]
     Active Substance: SORAFENIB
     Indication: SOFT TISSUE NEOPLASM
     Dosage: 200 MG, BID
     Route: 048

REACTIONS (19)
  - Emotional disorder [None]
  - Hypertension [None]
  - Hypertension [Not Recovered/Not Resolved]
  - Hypertension [None]
  - Skin disorder [Not Recovered/Not Resolved]
  - Dry skin [None]
  - Depression [None]
  - Madarosis [Not Recovered/Not Resolved]
  - Tracheal operation [None]
  - Nausea [Not Recovered/Not Resolved]
  - Hospitalisation [None]
  - Panic attack [None]
  - Skin discolouration [Recovering/Resolving]
  - Drug dose omission [None]
  - Drug dose omission [None]
  - Ocular hyperaemia [None]
  - Hair colour changes [Recovering/Resolving]
  - Hypertension [Not Recovered/Not Resolved]
  - Off label use [None]

NARRATIVE: CASE EVENT DATE: 20170310
